FAERS Safety Report 9324827 (Version 7)
Quarter: 2013Q4

REPORT INFORMATION
  Report Type: Report from Study
  Country: FR (occurrence: FR)
  Receive Date: 20130603
  Receipt Date: 20131121
  Transmission Date: 20140711
  Serious: Yes (Life-Threatening)
  Sender: FDA-Public Use
  Company Number: FR-TEVA-407461USA

PATIENT
  Age: 68 Year
  Sex: Male
  Weight: 68.1 kg

DRUGS (8)
  1. LEVACT [Suspect]
     Indication: MANTLE CELL LYMPHOMA
     Dosage: 2.5MG/ML
     Route: 041
     Dates: start: 20121217, end: 20130507
  2. LEVACT [Suspect]
     Dosage: 2.5MG/ML
     Route: 041
     Dates: end: 20130513
  3. MABTHERA [Suspect]
     Indication: MANTLE CELL LYMPHOMA
     Route: 041
     Dates: start: 20121217, end: 20130506
  4. MABTHERA [Suspect]
     Route: 041
     Dates: end: 20130513
  5. VELCADE [Suspect]
     Indication: MANTLE CELL LYMPHOMA
     Route: 058
     Dates: start: 20121217, end: 20130509
  6. VELCADE [Suspect]
     Route: 058
     Dates: end: 20130513
  7. DEXAMETHASONE [Suspect]
     Indication: MANTLE CELL LYMPHOMA
     Route: 041
     Dates: start: 20121218, end: 20130507
  8. DEXAMETHASONE [Suspect]
     Route: 041
     Dates: end: 20130513

REACTIONS (6)
  - Respiratory failure [Recovered/Resolved]
  - Hypoxia [Recovered/Resolved]
  - Bladder disorder [Recovered/Resolved]
  - Haematuria [Recovered/Resolved]
  - Bone marrow failure [Recovered/Resolved]
  - Pneumonia parainfluenzae viral [Recovered/Resolved]
